FAERS Safety Report 21835945 (Version 1)
Quarter: 2023Q1

REPORT INFORMATION
  Report Type: Other
  Country: US (occurrence: None)
  Receive Date: 20230109
  Receipt Date: 20230109
  Transmission Date: 20230417
  Serious: Yes (Other)
  Sender: FDA-Public Use
  Company Number: US-ROCHE-2602897

PATIENT
  Age: 57 Year
  Sex: Female

DRUGS (1)
  1. OCREVUS [Suspect]
     Active Substance: OCRELIZUMAB
     Indication: Multiple sclerosis
     Dosage: DATE OF SERVICE:  22/NOV/2019, 06/DEC/2019, 30/AUG/2020
     Route: 042
     Dates: start: 20191122

REACTIONS (4)
  - Seizure [Recovered/Resolved]
  - COVID-19 [Unknown]
  - Infection [Unknown]
  - Fatigue [Unknown]
